FAERS Safety Report 4806795-7 (Version None)
Quarter: 2005Q4

REPORT INFORMATION
  Report Type: 
  Country: None (occurrence: None)
  Receive Date: 20051019
  Receipt Date: 20051004
  Transmission Date: 20060501
  Serious: Yes (Death, Hospitalization)
  Sender: FDA-Public Use
  Company Number: EWC050946089

PATIENT
  Age: 57 Year
  Sex: Male
  Weight: 67 kg

DRUGS (10)
  1. GEMCITABINE HYDROCHLORIDE-IV (GEMCITABINE) [Suspect]
     Indication: LUNG NEOPLASM MALIGNANT
     Dates: start: 20050615, end: 20050913
  2. CARBOPLATIN [Suspect]
     Indication: LUNG NEOPLASM MALIGNANT
     Dosage: 1250 MG/M2 OTHER
     Route: 050
     Dates: start: 20050615, end: 20050906
  3. LEXATIN (BROMAZEPAM) [Concomitant]
  4. HUMALOG MIX 50 (INSULIN) [Concomitant]
  5. NOLOTIL [Concomitant]
  6. TROMALYT (ACETYLSALICYLIC ACID0 [Concomitant]
  7. ATROVENT [Concomitant]
  8. SERETIDE [Concomitant]
  9. FUROSEMIDE [Concomitant]
  10. OMEPRAZOLE [Concomitant]

REACTIONS (1)
  - PANCYTOPENIA [None]
